FAERS Safety Report 22055184 (Version 1)
Quarter: 2023Q1

REPORT INFORMATION
  Report Type: Spontaneous
  Country: US (occurrence: None)
  Receive Date: 20230301
  Receipt Date: 20230301
  Transmission Date: 20230417
  Serious: Yes (Hospitalization)
  Sender: FDA-Public Use
  Company Number: None

PATIENT
  Age: 77 Year
  Sex: Female
  Weight: 96.75 kg

DRUGS (17)
  1. OZEMPIC [Suspect]
     Active Substance: SEMAGLUTIDE
     Indication: Glucose tolerance impaired
     Dosage: FREQUENCY : WEEKLY;?
     Route: 058
     Dates: start: 20221205, end: 20230116
  2. OZEMPIC [Suspect]
     Active Substance: SEMAGLUTIDE
     Indication: Obesity
  3. DEVICE [Concomitant]
     Active Substance: DEVICE
  4. LAMICTAL [Concomitant]
     Active Substance: LAMOTRIGINE
  5. TRAZODONE [Concomitant]
     Active Substance: TRAZODONE HYDROCHLORIDE
  6. IRBESARTAN [Concomitant]
     Active Substance: IRBESARTAN
  7. METOPROLOL [Concomitant]
     Active Substance: METOPROLOL
  8. ANASTROZOLE [Concomitant]
     Active Substance: ANASTROZOLE
  9. SIMVASTATIN [Concomitant]
     Active Substance: SIMVASTATIN
  10. TRILEPTAL [Concomitant]
     Active Substance: OXCARBAZEPINE
  11. ATIVAN [Concomitant]
     Active Substance: LORAZEPAM
  12. VRAYLAR [Concomitant]
     Active Substance: CARIPRAZINE
  13. CLARITIN [Concomitant]
     Active Substance: LORATADINE
  14. VITAMIN D3 [Concomitant]
     Active Substance: CHOLECALCIFEROL
  15. VITAMIN B12 [Concomitant]
     Active Substance: CYANOCOBALAMIN
  16. ASPIRIN [Concomitant]
     Active Substance: ASPIRIN
  17. CALCIUM [Concomitant]
     Active Substance: CALCIUM

REACTIONS (10)
  - Constipation [None]
  - Diarrhoea [None]
  - Abdominal pain upper [None]
  - Intestinal obstruction [None]
  - Hypophagia [None]
  - Asthenia [None]
  - Gait disturbance [None]
  - Dysstasia [None]
  - Dehydration [None]
  - Gastrointestinal oedema [None]

NARRATIVE: CASE EVENT DATE: 20230122
